FAERS Safety Report 8396263-0 (Version None)
Quarter: 2012Q2

REPORT INFORMATION
  Report Type: 
  Country: None (occurrence: None)
  Receive Date: 20120530
  Receipt Date: 20120517
  Transmission Date: 20120825
  Serious: Yes (Other)
  Sender: FDA-Public Use
  Company Number: US-ROCHE-791336

PATIENT
  Sex: Male
  Weight: 131.66 kg

DRUGS (3)
  1. ACCUTANE [Suspect]
  2. ACCUTANE [Suspect]
     Indication: ACNE CYSTIC
     Route: 065
  3. ACCUTANE [Suspect]

REACTIONS (12)
  - DRY SKIN [None]
  - INFLAMMATORY BOWEL DISEASE [None]
  - CHEILITIS [None]
  - INJURY [None]
  - URETHROPERINEAL FISTULA [None]
  - DEPRESSION [None]
  - CROHN'S DISEASE [None]
  - ASTEATOSIS [None]
  - HIDRADENITIS [None]
  - DERMATITIS [None]
  - ANAL FISSURE [None]
  - EPISTAXIS [None]
